FAERS Safety Report 13975898 (Version 3)
Quarter: 2017Q4

REPORT INFORMATION
  Report Type: Spontaneous
  Country: JP (occurrence: JP)
  Receive Date: 20170915
  Receipt Date: 20171019
  Transmission Date: 20180321
  Serious: Yes (Hospitalization)
  Sender: FDA-Public Use
  Company Number: PHJP2017JP028379

PATIENT
  Age: 64 Year
  Sex: Male

DRUGS (3)
  1. FP [Concomitant]
     Active Substance: SELEGILINE HYDROCHLORIDE
     Indication: PARKINSON^S DISEASE
     Dosage: 2.5 MG, UNK
     Route: 065
     Dates: end: 20170913
  2. STALEVO [Suspect]
     Active Substance: CARBIDOPA\ENTACAPONE\LEVODOPA
     Indication: PARKINSON^S DISEASE
     Dosage: 300 MG, QD
     Route: 050
  3. BI-SIFROL [Concomitant]
     Active Substance: PRAMIPEXOLE
     Indication: PARKINSON^S DISEASE
     Dosage: 4.5 MG, UNK
     Route: 050

REACTIONS (3)
  - Loss of consciousness [Not Recovered/Not Resolved]
  - Metabolic acidosis [Recovering/Resolving]
  - Leukoencephalopathy [Not Recovered/Not Resolved]

NARRATIVE: CASE EVENT DATE: 20170905
